FAERS Safety Report 23668983 (Version 2)
Quarter: 2024Q2

REPORT INFORMATION
  Report Type: Report from Study
  Country: US (occurrence: US)
  Receive Date: 20240325
  Receipt Date: 20240501
  Transmission Date: 20240716
  Serious: Yes (Other)
  Sender: FDA-Public Use
  Company Number: US-UCBSA-2024013993

PATIENT
  Sex: Female

DRUGS (1)
  1. LEVETIRACETAM [Suspect]
     Active Substance: LEVETIRACETAM
     Indication: Seizure
     Dosage: 1500 MILLIGRAM, 2X/DAY (BID)

REACTIONS (4)
  - Thyroid operation [Recovering/Resolving]
  - Pharyngeal mass [Recovering/Resolving]
  - Obstructive airways disorder [Recovering/Resolving]
  - Dyspnoea [Recovering/Resolving]
